FAERS Safety Report 7422234-4 (Version None)
Quarter: 2011Q2

REPORT INFORMATION
  Report Type: 
  Country: None (occurrence: None)
  Receive Date: 20110418
  Receipt Date: 20110406
  Transmission Date: 20111010
  Serious: Yes (Life-Threatening, Other)
  Sender: FDA-Public Use
  Company Number: US-BAYER-2011-030520

PATIENT
  Sex: Female

DRUGS (4)
  1. HCTV [Concomitant]
  2. LISINOPRIL [Concomitant]
  3. ENDRYL [Concomitant]
  4. AVELOX [Suspect]
     Indication: RESPIRATORY DISORDER
     Dosage: 400 MG, QD
     Route: 048

REACTIONS (7)
  - ANAPHYLACTIC REACTION [None]
  - FLUSHING [None]
  - DIARRHOEA [None]
  - SWOLLEN TONGUE [None]
  - CHEST PAIN [None]
  - ADVERSE EVENT [None]
  - OESOPHAGEAL SPASM [None]
